FAERS Safety Report 7592803-X (Version None)
Quarter: 2011Q3

REPORT INFORMATION
  Report Type: 
  Country: None (occurrence: None)
  Receive Date: 20110706
  Receipt Date: 20110629
  Transmission Date: 20111222
  Serious: Yes (Hospitalization, Other)
  Sender: FDA-Public Use
  Company Number: US-PFIZER INC-2011146353

PATIENT
  Sex: Male

DRUGS (1)
  1. CHANTIX [Suspect]
     Dosage: UNK
     Dates: start: 20071101

REACTIONS (9)
  - SUICIDAL IDEATION [None]
  - CONFUSIONAL STATE [None]
  - HALLUCINATION [None]
  - PARANOIA [None]
  - DEPRESSION [None]
  - ABNORMAL BEHAVIOUR [None]
  - ANXIETY [None]
  - SLEEP TERROR [None]
  - AGGRESSION [None]
